FAERS Safety Report 5413333-7 (Version None)
Quarter: 2007Q3

REPORT INFORMATION
  Report Type: 
  Country: None (occurrence: None)
  Receive Date: 20070810
  Receipt Date: 20070726
  Transmission Date: 20080115
  Serious: Yes (Hospitalization, Other)
  Sender: FDA-Public Use
  Company Number: 2007US-08885

PATIENT
  Sex: Male

DRUGS (1)
  1. ISOTRETINOIN [Suspect]
     Indication: ACNE
     Dosage: 40 MG, ORAL
     Route: 048
     Dates: end: 20070630

REACTIONS (7)
  - AGGRESSION [None]
  - AGNOSIA [None]
  - ALCOHOL USE [None]
  - ANGER [None]
  - DISORIENTATION [None]
  - HALLUCINATION [None]
  - IMPULSIVE BEHAVIOUR [None]
